APPROVED DRUG PRODUCT: FLUOCINOLONE ACETONIDE
Active Ingredient: FLUOCINOLONE ACETONIDE
Strength: 0.025%
Dosage Form/Route: OINTMENT;TOPICAL
Application: A089524 | Product #001 | TE Code: AT
Applicant: COSETTE PHARMACEUTICALS INC
Approved: Jul 26, 1988 | RLD: No | RS: No | Type: RX